FAERS Safety Report 24601181 (Version 1)
Quarter: 2024Q4

REPORT INFORMATION
  Report Type: Spontaneous
  Country: US (occurrence: US)
  Receive Date: 20241110
  Receipt Date: 20241110
  Transmission Date: 20250114
  Serious: Yes (Hospitalization, Other)
  Sender: NOVO NORDISK
  Company Number: US-NOVOPROD-1312650

PATIENT
  Sex: Female

DRUGS (2)
  1. NORDITROPIN [Suspect]
     Active Substance: SOMATROPIN
     Indication: Product used for unknown indication
     Dosage: UNK
     Route: 058
     Dates: end: 2023
  2. HYDROCORTISONE ACETATE [Concomitant]
     Active Substance: HYDROCORTISONE ACETATE
     Indication: Product used for unknown indication
     Dosage: 40 MG QAM, 20 MG AT 3 PM

REACTIONS (13)
  - Cardiac arrest [Unknown]
  - Rib fracture [Unknown]
  - Pneumonia [Unknown]
  - Adrenocortical insufficiency acute [Unknown]
  - Heavy menstrual bleeding [Unknown]
  - Nausea [Unknown]
  - Vomiting [Unknown]
  - Diarrhoea [Unknown]
  - Thyroid mass [Unknown]
  - Weight decreased [Unknown]
  - Type IIa hyperlipidaemia [Unknown]
  - Hypopituitarism [Unknown]
  - Glycosylated haemoglobin increased [Unknown]

NARRATIVE: CASE EVENT DATE: 20231201
